FAERS Safety Report 13015602 (Version 11)
Quarter: 2020Q3

REPORT INFORMATION
  Report Type: Report from Study
  Country: KR (occurrence: KR)
  Receive Date: 20161212
  Receipt Date: 20171025
  Transmission Date: 20201105
  Serious: Yes (Hospitalization)
  Sender: FDA-Public Use
  Company Number: KR-ROCHE-1859332

PATIENT
  Age: 48 Year
  Sex: Female
  Weight: 59.8 kg

DRUGS (21)
  1. DEXAMETHASONE. [Concomitant]
     Active Substance: DEXAMETHASONE
     Route: 065
     Dates: start: 20161207
  2. RANITIDINE. [Concomitant]
     Active Substance: RANITIDINE
     Indication: GASTRIC ULCER
     Route: 065
     Dates: start: 20161208
  3. CHLORPHENIRAMINE. [Concomitant]
     Active Substance: CHLORPHENIRAMINE
     Dosage: INDICATION PREMEDICATION FOR TRANSFUSION
     Route: 065
     Dates: start: 20161123, end: 20161123
  4. CHLORPHENIRAMINE. [Concomitant]
     Active Substance: CHLORPHENIRAMINE
     Dosage: INDICATION PREMEDICATION FOR TRANSFUSION
     Route: 065
     Dates: start: 20161128, end: 20161128
  5. CHLORPHENIRAMINE. [Concomitant]
     Active Substance: CHLORPHENIRAMINE
     Route: 065
     Dates: start: 20161207
  6. CORTISOLU [Concomitant]
     Active Substance: HYDROCORTISONE SODIUM SUCCINATE
     Dosage: INDICATION PREMEDICATION FOR TRANSFUSION
     Route: 065
     Dates: start: 20161207
  7. IDASANUTLIN. [Suspect]
     Active Substance: IDASANUTLIN
     Indication: DIFFUSE LARGE B-CELL LYMPHOMA
     Dosage: STARTING DOSE OF 100 MG DAILY ON DAYS 1 TO 5 OF EACH 28?DAY CYCLE. ESCALATION WILL OCCUR IN AT LEAST
     Route: 048
     Dates: start: 20161024
  8. CEFEPIME [Concomitant]
     Active Substance: CEFEPIME HYDROCHLORIDE
     Indication: INFECTION
     Route: 065
     Dates: start: 20161213
  9. OBINUTUZUMAB. [Suspect]
     Active Substance: OBINUTUZUMAB
     Indication: DIFFUSE LARGE B-CELL LYMPHOMA
     Dosage: DAYS 1, 8 AND 15 OF CYCLE 1 AND ON DAY 1 OF CYCLES 2 TO 6 (1 CYCLE=28 DAYS). ?DATE OF MOST RECENT DO
     Route: 042
     Dates: start: 20161024
  10. MORPHINE HCL [Concomitant]
     Active Substance: MORPHINE HYDROCHLORIDE
     Indication: PAIN
     Route: 065
     Dates: start: 20161215, end: 20161215
  11. MORPHINE HCL [Concomitant]
     Active Substance: MORPHINE HYDROCHLORIDE
     Indication: TOOTH EXTRACTION
  12. ONDANSETRON [Concomitant]
     Active Substance: ONDANSETRON
     Indication: PREMEDICATION
     Route: 065
     Dates: start: 20161215
  13. HEPARIN [Concomitant]
     Active Substance: HEPARIN SODIUM
     Route: 065
  14. UROKINASE [Concomitant]
     Active Substance: UROKINASE
     Route: 065
     Dates: start: 20161216, end: 20161216
  15. KETOPROFEN. [Concomitant]
     Active Substance: KETOPROFEN
     Indication: MYALGIA
     Route: 065
     Dates: start: 20161216, end: 20161216
  16. CORTISOLU [Concomitant]
     Active Substance: HYDROCORTISONE SODIUM SUCCINATE
     Dosage: INDICATION PREMEDICATION FOR TRANSFUSION
     Route: 065
     Dates: start: 20161123, end: 20161123
  17. MGSO4 [Concomitant]
     Active Substance: MAGNESIUM SULFATE
     Indication: HYPOMAGNESAEMIA
     Route: 065
     Dates: start: 20161210, end: 20161213
  18. GEMCITABINE. [Concomitant]
     Active Substance: GEMCITABINE
     Indication: CHEMOTHERAPY
  19. CORTISOLU [Concomitant]
     Active Substance: HYDROCORTISONE SODIUM SUCCINATE
     Dosage: INDICATION PREMEDICATION FOR TRANSFUSION
     Route: 065
     Dates: start: 20161128, end: 20161128
  20. ACECLOFENAC [Concomitant]
     Active Substance: ACECLOFENAC
     Route: 065
     Dates: start: 20161207
  21. SULFAMETHOXAZOLE/TRIMETHOPRIM [Concomitant]
     Active Substance: SULFAMETHOXAZOLE\TRIMETHOPRIM
     Indication: INFECTION
     Dosage: SULFAMETHOXAZOLE 400MG/TRIMETHOPRIM 80MG
     Route: 065
     Dates: start: 20161213

REACTIONS (4)
  - Pancytopenia [Recovered/Resolved]
  - Thrombocytopenia [Recovered/Resolved]
  - Febrile neutropenia [Recovered/Resolved]
  - Neutropenia [Recovered/Resolved]

NARRATIVE: CASE EVENT DATE: 20161123
